FAERS Safety Report 4338416-4 (Version None)
Quarter: 2004Q2

REPORT INFORMATION
  Report Type: 
  Country: None (occurrence: None)
  Receive Date: 20040407
  Receipt Date: 20040324
  Transmission Date: 20050107
  Serious: Yes (Death, Other)
  Sender: FDA-Public Use
  Company Number: NSADSS2002023239

PATIENT
  Age: 66 Year
  Sex: Male

DRUGS (12)
  1. REMICADE [Suspect]
     Indication: RHEUMATOID ARTHRITIS
     Dosage: SEE IMAGE
     Route: 041
     Dates: start: 20011015, end: 20011015
  2. REMICADE [Suspect]
     Indication: RHEUMATOID ARTHRITIS
     Dosage: SEE IMAGE
     Route: 041
     Dates: start: 20011029, end: 20011029
  3. REMICADE [Suspect]
     Indication: RHEUMATOID ARTHRITIS
     Dosage: SEE IMAGE
     Route: 041
     Dates: start: 20011127, end: 20011127
  4. REMICADE [Suspect]
     Indication: RHEUMATOID ARTHRITIS
     Dosage: SEE IMAGE
     Route: 041
     Dates: start: 20020214, end: 20020214
  5. METHOTREXATE [Concomitant]
  6. EUGLUCON (GLIBENCLAMIDE) [Concomitant]
  7. FROBEN (FLURBIPROFEN) [Concomitant]
  8. STEROID, NOS (CORTICOSTEROID NOS) [Concomitant]
  9. ACFOL (FOLIC ACID) [Concomitant]
  10. X [Concomitant]
  11. X [Concomitant]
  12. X [Concomitant]

REACTIONS (7)
  - NASOPHARYNGITIS [None]
  - PROTEINURIA [None]
  - PULMONARY TUBERCULOSIS [None]
  - RENAL FAILURE [None]
  - RESPIRATORY ARREST [None]
  - SERUM FERRITIN INCREASED [None]
  - URINARY CASTS [None]
